FAERS Safety Report 6903363-8 (Version None)
Quarter: 2010Q3

REPORT INFORMATION
  Report Type: 
  Country: None (occurrence: None)
  Receive Date: 20100803
  Receipt Date: 20080922
  Transmission Date: 20110219
  Serious: No
  Sender: FDA-Public Use
  Company Number: US-PFIZER INC-2008079925

PATIENT
  Sex: Female
  Weight: 48.99 kg

DRUGS (10)
  1. LYRICA [Suspect]
     Indication: DIABETIC NEUROPATHY
     Dates: start: 20080920
  2. NEURONTIN [Suspect]
     Indication: DIABETIC NEUROPATHY
     Dates: start: 20080101, end: 20080901
  3. AVANDIA [Concomitant]
  4. POTASSIUM CITRATE [Concomitant]
     Indication: NEPHROLITHIASIS
  5. LOTENSIN [Concomitant]
  6. NIASPAN [Concomitant]
  7. DOXEPIN HCL [Concomitant]
  8. MOBIC [Concomitant]
  9. ZOCOR [Concomitant]
  10. METFORMIN HCL [Concomitant]

REACTIONS (3)
  - DRUG INEFFECTIVE [None]
  - JOINT STIFFNESS [None]
  - OEDEMA PERIPHERAL [None]
